FAERS Safety Report 18894251 (Version 1)
Quarter: 2021Q1

REPORT INFORMATION
  Report Type: Spontaneous
  Country: TR (occurrence: TR)
  Receive Date: 20210215
  Receipt Date: 20210215
  Transmission Date: 20210420
  Serious: Yes (Other)
  Sender: FDA-Public Use
  Company Number: NVSC2021TR035197

PATIENT
  Age: 80 Year
  Sex: Male

DRUGS (8)
  1. DEXTROSE. [Concomitant]
     Active Substance: DEXTROSE
     Indication: SUSPECTED COVID-19
     Dosage: SOLUTION
     Route: 065
  2. HYDROXYCHLOROQUINE [Suspect]
     Active Substance: HYDROXYCHLOROQUINE
     Dosage: 200 MG, Q12H (FROM THIRD DOSE)
     Route: 065
  3. RANITIDINE. [Concomitant]
     Active Substance: RANITIDINE
     Indication: SUSPECTED COVID-19
     Dosage: 50 MG, Q24H
     Route: 065
  4. HYDROXYCHLOROQUINE [Suspect]
     Active Substance: HYDROXYCHLOROQUINE
     Indication: SUSPECTED COVID-19
     Dosage: 400 MG, Q12H (LOADING DOSE ON DAY 1)
     Route: 065
  5. SODIUM CHLORIDE. [Concomitant]
     Active Substance: SODIUM CHLORIDE
     Indication: SUSPECTED COVID-19
     Dosage: UNK
     Route: 065
  6. VITAMIIN C [Concomitant]
     Active Substance: ASCORBIC ACID
     Indication: SUSPECTED COVID-19
     Dosage: UNK
     Route: 065
  7. ACETYLSALICYLIC ACID [Concomitant]
     Active Substance: ASPIRIN
     Indication: SUSPECTED COVID-19
     Dosage: 100 MG, Q24H
     Route: 065
  8. VITAMIN B COMPLEX [Concomitant]
     Active Substance: CYANOCOBALAMIN\DEXPANTHENOL\NIACINAMIDE\PYRIDOXINE HYDROCHLORIDE\RIBOFLAVIN 5^-PHOSPHATE SODIUM\THIAMINE HYDROCHLORIDE\VITAMIN B COMPLEX
     Indication: SUSPECTED COVID-19
     Dosage: UNK
     Route: 065

REACTIONS (2)
  - Product use in unapproved indication [Unknown]
  - Blood creatine phosphokinase increased [Recovered/Resolved]
